FAERS Safety Report 20000772 (Version 1)
Quarter: 2021Q4

REPORT INFORMATION
  Report Type: Spontaneous
  Country: US (occurrence: US)
  Receive Date: 20211027
  Receipt Date: 20211027
  Transmission Date: 20220303
  Serious: No
  Sender: FDA-Public Use
  Company Number: US-DRREDDYS-SPO/USA/21/0142614

PATIENT
  Sex: Female

DRUGS (1)
  1. BUPRENORPHINE\NALOXONE [Suspect]
     Active Substance: BUPRENORPHINE\NALOXONE
     Indication: Product used for unknown indication
     Dosage: 8 MG AND 2 MG
     Route: 060

REACTIONS (4)
  - Malaise [Unknown]
  - Pruritus [Unknown]
  - Hypersensitivity [Unknown]
  - Accidental exposure to product [Unknown]

NARRATIVE: CASE EVENT DATE: 20211012
